FAERS Safety Report 18731125 (Version 1)
Quarter: 2021Q1

REPORT INFORMATION
  Report Type: Spontaneous
  Country: US (occurrence: US)
  Receive Date: 20210112
  Receipt Date: 20210112
  Transmission Date: 20210419
  Serious: Yes (Death, Hospitalization)
  Sender: FDA-Public Use
  Company Number: US-PFIZER INC-2021015873

PATIENT
  Age: 34 Year
  Sex: Female

DRUGS (5)
  1. METHAMPHETAMINE [METAMFETAMINE] [Suspect]
     Active Substance: METHAMPHETAMINE
     Dosage: UNK, INGESTION
     Route: 048
  2. HYDROXYZINE PAMOATE. [Suspect]
     Active Substance: HYDROXYZINE PAMOATE
     Dosage: UNK, INGESTION
     Route: 048
  3. DIPHENHYDRAMINE. [Suspect]
     Active Substance: DIPHENHYDRAMINE
     Dosage: UNK, INGESTION
     Route: 048
  4. ARIPIPRAZOLE. [Suspect]
     Active Substance: ARIPIPRAZOLE
     Dosage: UNK, INGESTION
     Route: 048
  5. BUPROPION. [Suspect]
     Active Substance: BUPROPION
     Dosage: UNK, INGESTION
     Route: 048

REACTIONS (3)
  - Completed suicide [Fatal]
  - Respiratory arrest [Fatal]
  - Cardiac arrest [Fatal]

NARRATIVE: CASE EVENT DATE: 2019
